FAERS Safety Report 21177617 (Version 2)
Quarter: 2022Q3

REPORT INFORMATION
  Report Type: Spontaneous
  Country: FR (occurrence: FR)
  Receive Date: 20220805
  Receipt Date: 20220817
  Transmission Date: 20221027
  Serious: Yes (Hospitalization)
  Sender: FDA-Public Use
  Company Number: FR-TEVA-2022-FR-2060066

PATIENT
  Age: 25 Year
  Sex: Female

DRUGS (10)
  1. TRAMADOL [Suspect]
     Active Substance: TRAMADOL
     Indication: Pain
     Dosage: TO TAKE WHEN NEEDED (MAXIMUM OF 2 TABLETS PER DAY)
     Route: 065
     Dates: start: 2018
  2. TRAMADOL [Suspect]
     Active Substance: TRAMADOL
     Dosage: 500 MILLIGRAM DAILY; FIVE SLOW-RELEASE TABLETS PER DAY
     Route: 065
     Dates: start: 2018
  3. TRAMADOL [Suspect]
     Active Substance: TRAMADOL
     Dosage: 2000 MILLIGRAM DAILY;
     Route: 065
     Dates: start: 2019
  4. TRAMADOL [Suspect]
     Active Substance: TRAMADOL
     Dosage: UP TO 1000 MG DAILY
     Route: 048
     Dates: start: 2019
  5. DIAZEPAM [Suspect]
     Active Substance: DIAZEPAM
     Indication: Anxiety
     Dosage: MAXIMUM TWO TABLETS PER DAY?DURATION:15 DAYS
     Route: 065
     Dates: start: 2020
  6. DIAZEPAM [Suspect]
     Active Substance: DIAZEPAM
     Indication: Insomnia
     Dosage: UNSPECIFIED AMOUNT ADMINISTERED FOR POISONING
     Route: 065
     Dates: start: 2020
  7. PAROXETINE [Suspect]
     Active Substance: PAROXETINE
     Indication: Major depression
     Dosage: 20 MILLIGRAM DAILY;
     Route: 065
     Dates: start: 2020
  8. PAROXETINE [Suspect]
     Active Substance: PAROXETINE
     Dosage: UNSPECIFIED AMOUNT ADMINISTERED FOR POISONING
     Route: 065
     Dates: start: 2020
  9. LAMOTRIGINE [Concomitant]
     Active Substance: LAMOTRIGINE
     Indication: Generalised tonic-clonic seizure
     Dosage: 100 MILLIGRAM DAILY;
     Route: 065
     Dates: start: 2019
  10. LAMOTRIGINE [Concomitant]
     Active Substance: LAMOTRIGINE
     Route: 065

REACTIONS (10)
  - Suicide attempt [Unknown]
  - Toxicity to various agents [Unknown]
  - Intentional product misuse [Unknown]
  - Overdose [Unknown]
  - Drug dependence [Unknown]
  - Impatience [Recovered/Resolved]
  - Anxiety [Recovered/Resolved]
  - Diarrhoea [Recovered/Resolved]
  - Chills [Recovered/Resolved]
  - Drug withdrawal syndrome [Unknown]

NARRATIVE: CASE EVENT DATE: 20201101
